FAERS Safety Report 10301158 (Version 1)
Quarter: 2014Q3

REPORT INFORMATION
  Report Type: Spontaneous
  Country: US (occurrence: None)
  Receive Date: 20140709
  Receipt Date: 20140709
  Transmission Date: 20150326
  Serious: Yes (Disabling, Other)
  Sender: FDA-Public Use
  Company Number: None

PATIENT
  Age: 56 Year
  Sex: Female
  Weight: 60.78 kg

DRUGS (16)
  1. TAMOXIFEN CITRATE. [Suspect]
     Active Substance: TAMOXIFEN CITRATE
     Indication: PROPHYLAXIS
     Route: 048
     Dates: start: 201311
  2. VITAMIN D3 [Concomitant]
     Active Substance: CHOLECALCIFEROL
  3. ALEGRA [Concomitant]
  4. LORATABS [Concomitant]
  5. PHENEGAN [Concomitant]
  6. EPIPEN [Concomitant]
     Active Substance: EPINEPHRINE
  7. LORATABS [Concomitant]
  8. COREG [Concomitant]
     Active Substance: CARVEDILOL
  9. CARDIZEMCO [Concomitant]
  10. ANTIVERT [Concomitant]
     Active Substance: MECLIZINE HYDROCHLORIDE
  11. ALBUTEROL INHALER [Concomitant]
     Active Substance: ALBUTEROL
  12. FIORICET [Concomitant]
     Active Substance: ACETAMINOPHEN\BUTALBITAL\CAFFEINE
  13. TAMOXIFEN CITRATE. [Suspect]
     Active Substance: TAMOXIFEN CITRATE
     Indication: BREAST CANCER RECURRENT
     Route: 048
     Dates: start: 201311
  14. FLEXARIL [Concomitant]
  15. HYDROCHLOROTHIAZIDE. [Concomitant]
     Active Substance: HYDROCHLOROTHIAZIDE
  16. VIACTIV [Concomitant]
     Active Substance: CALCIUM\VITAMIN D\VITAMIN K5

REACTIONS (4)
  - Spinal pain [None]
  - Myalgia [None]
  - Arthralgia [None]
  - Activities of daily living impaired [None]

NARRATIVE: CASE EVENT DATE: 201311
